FAERS Safety Report 10384097 (Version 1)
Quarter: 2014Q3

REPORT INFORMATION
  Report Type: Report from Study
  Country: CA (occurrence: CA)
  Receive Date: 20140814
  Receipt Date: 20140814
  Transmission Date: 20150326
  Serious: Yes (Other)
  Sender: FDA-Public Use
  Company Number: CA-JNJFOC-20140809532

PATIENT
  Age: 34 Year
  Sex: Male

DRUGS (1)
  1. REMICADE [Suspect]
     Active Substance: INFLIXIMAB
     Indication: CROHN^S DISEASE
     Route: 042
     Dates: start: 20130916

REACTIONS (7)
  - Weight decreased [Unknown]
  - Rash [Unknown]
  - Diarrhoea [Unknown]
  - Fistula [Unknown]
  - Night sweats [Unknown]
  - Insomnia [Unknown]
  - Malaise [Unknown]

NARRATIVE: CASE EVENT DATE: 201407
